FAERS Safety Report 4345854-2 (Version None)
Quarter: 2004Q2

REPORT INFORMATION
  Report Type: 
  Country: None (occurrence: None)
  Receive Date: 20040421
  Receipt Date: 20040412
  Transmission Date: 20050107
  Serious: Yes (Other)
  Sender: FDA-Public Use
  Company Number: 2004-02-1070

PATIENT
  Age: 76 Year
  Sex: Male
  Weight: 77.1115 kg

DRUGS (5)
  1. ALBUTEROL [Suspect]
     Indication: EMPHYSEMA
     Dosage: ORAL AER INH
     Route: 055
  2. WARFARIN SODIUM [Concomitant]
  3. DIGOXIN [Concomitant]
  4. HYDROCHLOROTHIAZIDE [Concomitant]
  5. COMBIVENT [Suspect]

REACTIONS (4)
  - HOARSENESS [None]
  - IMPAIRED HEALING [None]
  - LARYNGEAL CANCER [None]
  - VOCAL CORD THICKENING [None]
